FAERS Safety Report 13151267 (Version 1)
Quarter: 2017Q1

REPORT INFORMATION
  Report Type: Report from Study
  Country: US (occurrence: US)
  Receive Date: 20170125
  Receipt Date: 20170125
  Transmission Date: 20170428
  Serious: Yes (Hospitalization)
  Sender: FDA-Public Use
  Company Number: US-GILEAD-2017-0254205

PATIENT
  Age: 77 Year
  Sex: Female

DRUGS (14)
  1. LOSARTAN. [Concomitant]
     Active Substance: LOSARTAN
  2. AMBRISENTAN [Suspect]
     Active Substance: AMBRISENTAN
     Indication: PULMONARY HYPERTENSION
     Dosage: 10 MG, QD
     Route: 048
     Dates: start: 201108
  3. SENNOSIDES A+B [Concomitant]
     Active Substance: SENNOSIDES A AND B
  4. LEVOTHYROXINE. [Concomitant]
     Active Substance: LEVOTHYROXINE
  5. CINACALCET [Concomitant]
     Active Substance: CINACALCET
  6. DOCUSATE [Concomitant]
     Active Substance: DOCUSATE
  7. SILDENAFIL. [Concomitant]
     Active Substance: SILDENAFIL
  8. TREPROSTINIL [Concomitant]
     Active Substance: TREPROSTINIL
  9. AMBRISENTAN [Suspect]
     Active Substance: AMBRISENTAN
     Indication: HEART DISEASE CONGENITAL
     Dosage: UNK
     Route: 048
     Dates: start: 200811
  10. LACTULOSE. [Concomitant]
     Active Substance: LACTULOSE
  11. FUROSEMIDE. [Concomitant]
     Active Substance: FUROSEMIDE
  12. DILTIAZEM. [Concomitant]
     Active Substance: DILTIAZEM
  13. TIZANIDINE. [Concomitant]
     Active Substance: TIZANIDINE
  14. OMEPRAZOLE. [Concomitant]
     Active Substance: OMEPRAZOLE

REACTIONS (7)
  - Rectal haemorrhage [Recovered/Resolved]
  - Anaemia [Unknown]
  - Chest discomfort [Unknown]
  - Fluid overload [Recovering/Resolving]
  - Abdominal pain [Unknown]
  - Dyspnoea [Unknown]
  - Peripheral swelling [Recovering/Resolving]

NARRATIVE: CASE EVENT DATE: 20161221
